FAERS Safety Report 6770250-8 (Version None)
Quarter: 2010Q2

REPORT INFORMATION
  Report Type: 
  Country: None (occurrence: None)
  Receive Date: 20100615
  Receipt Date: 20100607
  Transmission Date: 20101027
  Serious: Yes (Hospitalization)
  Sender: FDA-Public Use
  Company Number: JP-BRISTOL-MYERS SQUIBB COMPANY-14574222

PATIENT
  Age: 65 Year
  Sex: Female

DRUGS (9)
  1. CARBOPLATIN [Suspect]
     Indication: NON-SMALL CELL LUNG CANCER
     Dosage: 1DF-5AUCON5MAR.5FEB 1STDOSE OF CARBOPLATIN:6AUC;INTERR-1AP09,RESTART AT REDUCED DOSE-16AP09,4.5AUC
     Route: 042
     Dates: start: 20090305, end: 20090305
  2. ABRAXANE [Suspect]
     Indication: NON-SMALL CELL LUNG CANCER
     Dosage: FIRST DOSE:5FEB09.INTERRUPTED ON 01-APR-2009,RESTARTED WITH DOSE REDUCED ON 16APR09,75MG/M2
     Route: 042
     Dates: start: 20090319, end: 20090319
  3. MAGNESIUM OXIDE [Concomitant]
     Indication: CONSTIPATION
     Route: 048
     Dates: start: 20090131
  4. SODIUM PICOSULFATE [Concomitant]
     Indication: CONSTIPATION
     Route: 048
  5. RAMOSETRON HCL [Concomitant]
     Dates: start: 20090205, end: 20090725
  6. DEXAMETHASONE [Concomitant]
     Route: 042
     Dates: start: 20090205, end: 20090625
  7. HEPARIN SODIUM [Concomitant]
     Route: 042
     Dates: start: 20090318, end: 20090610
  8. MAINTENANCE MEDIUM [Concomitant]
     Dosage: MAINTENANCE MEDIUM 3
     Route: 042
     Dates: start: 20090131, end: 20090722
  9. IOMEPROL [Concomitant]
     Route: 042
     Dates: start: 20090131, end: 20090722

REACTIONS (1)
  - HERPES ZOSTER [None]
